FAERS Safety Report 26153404 (Version 1)
Quarter: 2025Q4

REPORT INFORMATION
  Report Type: Spontaneous
  Country: EU (occurrence: EU)
  Receive Date: 20251214
  Receipt Date: 20251214
  Transmission Date: 20260118
  Serious: Yes (Hospitalization)
  Sender: PFIZER
  Company Number: None

PATIENT
  Age: 64 Year
  Sex: Male
  Weight: 85 kg

DRUGS (2)
  1. CARBOPLATIN [Suspect]
     Active Substance: CARBOPLATIN
     Indication: Bronchial carcinoma
     Dosage: 450 MG, SINGLE
     Route: 042
     Dates: start: 20251114, end: 20251114
  2. ALIMTA [Suspect]
     Active Substance: PEMETREXED DISODIUM
     Indication: Bronchial carcinoma
     Dosage: 450 MG, SINGLE
     Route: 042
     Dates: start: 20251114, end: 20251114

REACTIONS (1)
  - Skin reaction [Recovered/Resolved]

NARRATIVE: CASE EVENT DATE: 20251114
